FAERS Safety Report 23616751 (Version 1)
Quarter: 2024Q1

REPORT INFORMATION
  Report Type: Report from Study
  Country: US (occurrence: US)
  Receive Date: 20240311
  Receipt Date: 20240311
  Transmission Date: 20240409
  Serious: Yes (Other)
  Sender: FDA-Public Use
  Company Number: US-TAKEDA-US201930191

PATIENT
  Age: 72 Year
  Sex: Male

DRUGS (2)
  1. LANADELUMAB [Suspect]
     Active Substance: LANADELUMAB
     Indication: Cystic fibrosis
     Dosage: 300 MILLIGRAM
     Route: 058
  2. LANADELUMAB [Suspect]
     Active Substance: LANADELUMAB
     Dosage: UNK, Q2WEEKS
     Route: 058

REACTIONS (2)
  - Nephrolithiasis [Unknown]
  - Memory impairment [Unknown]

NARRATIVE: CASE EVENT DATE: 20190911
